FAERS Safety Report 9814303 (Version 2)
Quarter: 2014Q1

REPORT INFORMATION
  Report Type: Spontaneous
  Country: US (occurrence: US)
  Receive Date: 20140113
  Receipt Date: 20140317
  Transmission Date: 20141002
  Serious: Yes (Hospitalization)
  Sender: FDA-Public Use
  Company Number: US-VERTEX PHARMACEUTICALS INC-2014-000114

PATIENT
  Age: 50 Year
  Sex: Male
  Weight: 98 kg

DRUGS (3)
  1. INCIVEK [Suspect]
     Indication: HEPATITIS C
     Dosage: 750 MG, TID
     Route: 048
     Dates: start: 20131025, end: 20140116
  2. PEGINTERFERON [Suspect]
     Indication: HEPATITIS C
     Dosage: UNK
     Dates: start: 20131025
  3. RIBAVIRIN [Suspect]
     Indication: HEPATITIS C
     Dosage: UNK
     Dates: start: 20131025

REACTIONS (7)
  - Cellulitis [Unknown]
  - Dehydration [Unknown]
  - Rash generalised [Recovering/Resolving]
  - Weight increased [Unknown]
  - Local swelling [Recovering/Resolving]
  - Pancytopenia [Unknown]
  - Pruritus [Recovered/Resolved]
